FAERS Safety Report 4842314-7 (Version None)
Quarter: 2005Q4

REPORT INFORMATION
  Report Type: 
  Country: None (occurrence: None)
  Receive Date: 20051129
  Receipt Date: 20051116
  Transmission Date: 20060501
  Serious: Yes (Hospitalization)
  Sender: FDA-Public Use
  Company Number: 2005157843

PATIENT
  Age: 22 Year
  Sex: Female
  Weight: 85 kg

DRUGS (7)
  1. LYRICA [Suspect]
     Indication: NEURALGIA
     Dosage: 600 MG (300 MG, 2 IN 1 D), ORAL
     Route: 048
     Dates: start: 20050401
  2. TRAMADOL HCL [Concomitant]
  3. PARACETAMOL          (PARACETAMOL) [Concomitant]
  4. DICLOFENAC SODIUM [Concomitant]
  5. CIPRALEX             (ESCITALOPRAM) [Concomitant]
  6. FLIXOTIDE        (FLUTICASONE PROPIONATE) ^ALLEN + HANBURYS^ [Concomitant]
  7. VENTOLIN [Concomitant]

REACTIONS (3)
  - INTRACRANIAL PRESSURE INCREASED [None]
  - SPEECH DISORDER [None]
  - WEIGHT INCREASED [None]
